FAERS Safety Report 4842060-X (Version None)
Quarter: 2005Q4

REPORT INFORMATION
  Report Type: 
  Country: None (occurrence: None)
  Receive Date: 20051130
  Receipt Date: 20041118
  Transmission Date: 20060501
  Serious: Yes (Hospitalization, Disabling, Other)
  Sender: FDA-Public Use
  Company Number: JP-BRISTOL-MYERS SQUIBB COMPANY-12770343

PATIENT
  Age: 22 Year
  Sex: Female

DRUGS (14)
  1. VIDEX EC [Suspect]
     Indication: HIV INFECTION
     Dosage: THERAPY: 06-AUG-2003 TO 18-NOV-2003; 03-MAR-2004 TO 22-MAR-2005.
     Route: 048
     Dates: start: 20030806
  2. ZERIT [Suspect]
     Indication: HIV INFECTION
     Route: 048
     Dates: start: 20031119, end: 20040302
  3. RETROVIR [Suspect]
     Indication: HIV INFECTION
     Route: 048
     Dates: start: 20030806, end: 20031108
  4. VIRACEPT [Suspect]
     Indication: HIV INFECTION
     Route: 048
     Dates: start: 20030806, end: 20040302
  5. EPIVIR [Suspect]
     Indication: HIV INFECTION
     Dosage: THERAPY: 19-NOV-2003 TO 02-MAR-2004. RESTARTED ON 23-MAR-2005
     Route: 048
     Dates: start: 20031119
  6. ZIAGEN [Suspect]
     Indication: HIV INFECTION
     Route: 048
     Dates: start: 20040303
  7. KALETRA [Suspect]
     Indication: HIV INFECTION
     Route: 048
     Dates: start: 20040303
  8. CLARITHROMYCIN [Suspect]
     Indication: MYCOBACTERIUM AVIUM COMPLEX INFECTION
     Route: 048
     Dates: start: 20030401, end: 20050322
  9. COTRIM [Concomitant]
     Route: 048
     Dates: start: 20030401
  10. ETHAMBUTOL HCL [Concomitant]
     Route: 048
     Dates: start: 20030401, end: 20040322
  11. ZITHROMAC [Concomitant]
     Route: 048
     Dates: start: 20050323
  12. ACYCLOVIR [Concomitant]
     Dosage: 250 MG 3 TIMES DAILY ON 05-APR-2004; 325 MG 3 TIMES DAILY ON 06-APR-2004 TO 12-APR-2004.
     Route: 041
     Dates: start: 20040405
  13. VOLTAREN [Concomitant]
     Route: 048
     Dates: start: 20040405, end: 20040413
  14. XYLOCAINE [Concomitant]
     Dates: start: 20040405, end: 20040413

REACTIONS (4)
  - ANAEMIA [None]
  - CERVICAL DYSPLASIA [None]
  - HERPES SIMPLEX [None]
  - LEUKOPENIA [None]
